FAERS Safety Report 7389322-2 (Version None)
Quarter: 2011Q2

REPORT INFORMATION
  Report Type: 
  Country: None (occurrence: None)
  Receive Date: 20110401
  Receipt Date: 20101129
  Transmission Date: 20111010
  Serious: Yes (Hospitalization)
  Sender: FDA-Public Use
  Company Number: A0898618A

PATIENT
  Age: 58 Year
  Sex: Female

DRUGS (1)
  1. AVANDIA [Suspect]
     Dosage: 4MG TWICE PER DAY
     Route: 065
     Dates: start: 20030212, end: 20070620

REACTIONS (3)
  - MEMORY IMPAIRMENT [None]
  - OXYGEN SUPPLEMENTATION [None]
  - CORONARY ARTERY DISEASE [None]
